FAERS Safety Report 18103077 (Version 1)
Quarter: 2020Q3

REPORT INFORMATION
  Report Type: Spontaneous
  Country: VN (occurrence: VN)
  Receive Date: 20200803
  Receipt Date: 20200803
  Transmission Date: 20201103
  Serious: Yes (Other)
  Sender: FDA-Public Use
  Company Number: NVSC2020VN212768

PATIENT
  Age: 25 Year
  Sex: Male

DRUGS (1)
  1. GLIVEC [Suspect]
     Active Substance: IMATINIB MESYLATE
     Indication: CHRONIC MYELOID LEUKAEMIA
     Dosage: 400 MG, QD (TABLET+CAPSULE)
     Route: 048
     Dates: start: 201903, end: 20200623

REACTIONS (1)
  - Drug resistance [Recovering/Resolving]

NARRATIVE: CASE EVENT DATE: 20200617
